FAERS Safety Report 5012096-7 (Version None)
Quarter: 2006Q2

REPORT INFORMATION
  Report Type: 
  Country: None (occurrence: None)
  Receive Date: 20060524
  Receipt Date: 20060516
  Transmission Date: 20061013
  Serious: Yes (Other)
  Sender: FDA-Public Use
  Company Number: 2006S1000132

PATIENT
  Sex: Male

DRUGS (1)
  1. ACITRETIN [Suspect]
     Indication: PSORIASIS
     Dosage: 40 MG; QD; PO
     Route: 048

REACTIONS (4)
  - EYE HAEMORRHAGE [None]
  - LOCALISED OEDEMA [None]
  - NAIL DISCOLOURATION [None]
  - NAIL DISORDER [None]
